FAERS Safety Report 17001859 (Version 4)
Quarter: 2019Q4

REPORT INFORMATION
  Report Type: Report from Study
  Country: None (occurrence: CH)
  Receive Date: 20191106
  Receipt Date: 20191128
  Transmission Date: 20200122
  Serious: Yes (Hospitalization)
  Sender: FDA-Public Use
  Company Number: CH-ABBVIE-19K-151-2987662-00

PATIENT
  Age: 62 Year
  Sex: Male

DRUGS (9)
  1. DUODOPA [Suspect]
     Active Substance: CARBIDOPA\LEVODOPA
     Dosage: MD:5.5 ML CRD:5.0 ML/H, CONTINUOUS RATE NIGHT: 2 ML/H,ED:1.5 ML
     Route: 050
     Dates: start: 20191030, end: 20191102
  2. DUODOPA [Suspect]
     Active Substance: CARBIDOPA\LEVODOPA
     Dosage: MD:5.5 ML CRD:5.0 ML/H,CONTINUOUS RATE NIGHT: 2 ML/H,ED:1.5 ML
     Route: 050
     Dates: start: 20191102, end: 20191104
  3. DUODOPA [Suspect]
     Active Substance: CARBIDOPA\LEVODOPA
     Indication: PARKINSON^S DISEASE
     Route: 050
     Dates: start: 20190805, end: 20190905
  4. DUODOPA [Suspect]
     Active Substance: CARBIDOPA\LEVODOPA
     Dosage: MD:5.5 ML CRD:4.8 ML/H,CONTINUOUS RATE NIGHT: 2 ML/H,ED:1.5 ML 24 H THERAPY
     Route: 050
     Dates: start: 20191105, end: 201911
  5. DUODOPA [Suspect]
     Active Substance: CARBIDOPA\LEVODOPA
     Dosage: MD: 5.5 ML, CRD:5.0 ML/H CONTINUOUS RATE NIGHT:2 ML/H ED:1.5 ML
     Route: 050
     Dates: start: 20190905, end: 20191030
  6. DUODOPA [Suspect]
     Active Substance: CARBIDOPA\LEVODOPA
     Dosage: MD:5.5 ML CRD:5.0 ML/H,CONTINUOUS RATE NIGHT: 2 ML/H,ED:1.5 ML
     Route: 050
     Dates: start: 20191104, end: 20191105
  7. DUODOPA [Suspect]
     Active Substance: CARBIDOPA\LEVODOPA
     Dosage: MD: 5.5 ML, CRD: 4.7 ML/H, CONTINUOUS RATE NIGHT: 2 ML/H, ED: 1.5 ML LOCK LEVEL 2 H
     Route: 050
     Dates: start: 20191109, end: 20191109
  8. DUODOPA [Suspect]
     Active Substance: CARBIDOPA\LEVODOPA
     Dosage: MD:5 ML,CRD:5.3 ML/H,CONTINUOUS RATE NIGHT: 2 ML/H,ED:1.5 ML
     Route: 050
     Dates: start: 20190905, end: 20190905
  9. DUODOPA [Suspect]
     Active Substance: CARBIDOPA\LEVODOPA
     Dosage: MD: 5.5 ML, CRD: 3.5 ML/H, CONTINUOUS RATE NIGHT: 2 ML/H, ED: 1.5 ML LOCK LEVEL 2 H
     Route: 050
     Dates: start: 20191109

REACTIONS (4)
  - Intentional medical device removal by patient [Recovered/Resolved]
  - Device breakage [Recovered/Resolved]
  - Off label use [Recovered/Resolved]
  - Hallucination [Unknown]

NARRATIVE: CASE EVENT DATE: 2019
